FAERS Safety Report 6716979-9 (Version None)
Quarter: 2010Q2

REPORT INFORMATION
  Report Type: 
  Country: None (occurrence: None)
  Receive Date: 20100510
  Receipt Date: 20100510
  Transmission Date: 20101027
  Serious: Yes (Other)
  Sender: FDA-Public Use
  Company Number: None

PATIENT
  Age: 11 Year
  Sex: Female
  Weight: 36.2878 kg

DRUGS (1)
  1. CHILDREN'S TYLENOL DYE FREE CHERRY [Suspect]
     Indication: OROPHARYNGEAL PAIN
     Dosage: TEASPOON EVER 4 HOURS PO
     Route: 048
     Dates: start: 20100505, end: 20100507

REACTIONS (1)
  - PRODUCT QUALITY ISSUE [None]
